FAERS Safety Report 5957071-0 (Version None)
Quarter: 2008Q4

REPORT INFORMATION
  Report Type: 
  Country: None (occurrence: None)
  Receive Date: 20081118
  Receipt Date: 20081110
  Transmission Date: 20090506
  Serious: Yes (Other)
  Sender: FDA-Public Use
  Company Number: PHEH2008US09567

PATIENT
  Sex: Female
  Weight: 49.433 kg

DRUGS (1)
  1. LOTREL [Suspect]
     Indication: HYPERTENSION
     Dosage: 10/40 MG, ONCE DAILY
     Route: 048
     Dates: start: 20070326, end: 20081020

REACTIONS (3)
  - ANGIOEDEMA [None]
  - CHEILITIS [None]
  - LIP SWELLING [None]
